FAERS Safety Report 6399161-7 (Version None)
Quarter: 2009Q4

REPORT INFORMATION
  Report Type: 
  Country: None (occurrence: None)
  Receive Date: 20091008
  Receipt Date: 20090923
  Transmission Date: 20100525
  Serious: Yes (Life-Threatening)
  Sender: FDA-Public Use
  Company Number: 2008002771

PATIENT
  Age: 72 Year
  Sex: Female
  Weight: 46.4 kg

DRUGS (5)
  1. ERLOTINIB HYDROCHLORIDE [Suspect]
     Indication: LUNG SQUAMOUS CELL CARCINOMA STAGE UNSPECIFIED
     Dosage: (150 MG, QD) ORAL
     Route: 048
     Dates: start: 20080126, end: 20081013
  2. PIRENOXINE (PIRENOXINE) [Concomitant]
  3. ADOAIR [Concomitant]
  4. CODEINE PHOSPHATE (CODEINE PHOPHATE) [Concomitant]
  5. ALLELOCK [Concomitant]

REACTIONS (8)
  - ALOPECIA [None]
  - CONJUNCTIVITIS [None]
  - DIARRHOEA [None]
  - MEDIASTINITIS [None]
  - OESOPHAGEAL FISTULA [None]
  - PARONYCHIA [None]
  - PNEUMONIA [None]
  - RASH [None]
